FAERS Safety Report 25577410 (Version 1)
Quarter: 2025Q3

REPORT INFORMATION
  Report Type: Spontaneous
  Country: US (occurrence: US)
  Receive Date: 20250718
  Receipt Date: 20250718
  Transmission Date: 20251021
  Serious: Yes (Life-Threatening, Hospitalization)
  Sender: ELI LILLY AND COMPANY
  Company Number: US-ELI_LILLY_AND_COMPANY-US202507012141

PATIENT
  Age: 69 Year
  Sex: Male

DRUGS (3)
  1. MOUNJARO [Suspect]
     Active Substance: TIRZEPATIDE
     Indication: Type 2 diabetes mellitus
     Route: 065
  2. HYDROCHLOROTHIAZIDE [Concomitant]
     Active Substance: HYDROCHLOROTHIAZIDE
     Indication: Hypertension
     Route: 065
  3. DOXYCYCLINE [Concomitant]
     Active Substance: DOXYCYCLINE
     Indication: Abscess
     Route: 065

REACTIONS (8)
  - Cardiac arrest [Unknown]
  - Septic shock [Unknown]
  - Effusion [Unknown]
  - Pancreatic fistula [Unknown]
  - Empyema [Unknown]
  - Small intestinal obstruction [Unknown]
  - Respiratory failure [Unknown]
  - Pancreatitis [Unknown]
